FAERS Safety Report 11486877 (Version 1)
Quarter: 2015Q3

REPORT INFORMATION
  Report Type: Spontaneous
  Country: US (occurrence: US)
  Receive Date: 20150909
  Receipt Date: 20150909
  Transmission Date: 20151125
  Serious: No
  Sender: FDA-Public Use
  Company Number: US-JAZZ-JPI-P-020732

PATIENT
  Sex: Female

DRUGS (5)
  1. XYREM [Suspect]
     Active Substance: SODIUM OXYBATE
     Indication: NARCOLEPSY
     Dosage: 2.25 G, BID
     Route: 048
     Dates: start: 20040317
  2. ROPINIROLE. [Suspect]
     Active Substance: ROPINIROLE
     Indication: PRODUCT USED FOR UNKNOWN INDICATION
  3. XYREM [Suspect]
     Active Substance: SODIUM OXYBATE
     Dosage: 4.5 G, BID
     Route: 048
     Dates: start: 20120430, end: 201205
  4. XYREM [Suspect]
     Active Substance: SODIUM OXYBATE
     Indication: CATAPLEXY
     Dosage: 4.5 G, BID
     Route: 048
     Dates: start: 20120124, end: 201204
  5. XYREM [Suspect]
     Active Substance: SODIUM OXYBATE
     Dosage: 4.5 G, BID
     Route: 048
     Dates: start: 20120518, end: 20120518

REACTIONS (14)
  - Adverse drug reaction [Unknown]
  - Delusion [Unknown]
  - Anxiety [Unknown]
  - Vision blurred [Recovered/Resolved]
  - Abnormal behaviour [Unknown]
  - Dysgeusia [Recovered/Resolved]
  - Paranoia [Unknown]
  - Tremor [Recovered/Resolved]
  - Panic attack [Unknown]
  - Condition aggravated [Unknown]
  - Hyperhidrosis [Recovered/Resolved]
  - Dizziness [Recovered/Resolved]
  - Therapeutic response decreased [Unknown]
  - Initial insomnia [Recovered/Resolved]

NARRATIVE: CASE EVENT DATE: 2012
